FAERS Safety Report 5217295-7 (Version None)
Quarter: 2007Q1

REPORT INFORMATION
  Report Type: 
  Country: None (occurrence: None)
  Receive Date: 20070124
  Receipt Date: 20051222
  Transmission Date: 20070707
  Serious: No
  Sender: FDA-Public Use
  Company Number: US-GLAXOSMITHKLINE-A0586818A

PATIENT
  Age: 85 Year
  Sex: Female

DRUGS (5)
  1. PAXIL CR [Suspect]
     Indication: DEPRESSION
     Dosage: 25MG PER DAY
     Route: 048
     Dates: end: 20051221
  2. DILTIA XT [Concomitant]
  3. MOBIC [Concomitant]
  4. LORAZEPAM [Concomitant]
  5. TRIAVIL [Concomitant]

REACTIONS (3)
  - INSOMNIA [None]
  - POLLAKIURIA [None]
  - TREMOR [None]
